FAERS Safety Report 17427864 (Version 1)
Quarter: 2020Q1

REPORT INFORMATION
  Report Type: Spontaneous
  Country: US (occurrence: US)
  Receive Date: 20200201
  Receipt Date: 20200201
  Transmission Date: 20200409
  Serious: No
  Sender: FDA-Public Use
  Company Number: None

PATIENT
  Age: 51 Year
  Sex: Male

DRUGS (1)
  1. HUMIRA [Suspect]
     Active Substance: ADALIMUMAB
     Indication: PRODUCT USED FOR UNKNOWN INDICATION
     Route: 023
     Dates: start: 20191015

REACTIONS (5)
  - Pain [None]
  - Fatigue [None]
  - Joint stiffness [None]
  - Dizziness [None]
  - Abdominal pain [None]

NARRATIVE: CASE EVENT DATE: 20190110
